FAERS Safety Report 7484815-1 (Version None)
Quarter: 2011Q2

REPORT INFORMATION
  Report Type: 
  Country: None (occurrence: None)
  Receive Date: 20110517
  Receipt Date: 20110427
  Transmission Date: 20111010
  Serious: Yes (Hospitalization, Other)
  Sender: FDA-Public Use
  Company Number: PHHY2010DE16182

PATIENT
  Sex: Male
  Weight: 70 kg

DRUGS (6)
  1. EXTAVIA [Suspect]
     Indication: MULTIPLE SCLEROSIS
     Dosage: 250 UG/ML, QOD
     Route: 058
     Dates: start: 20090708, end: 20100101
  2. NASAL SPRAY [Concomitant]
  3. MITOXANTRONE [Concomitant]
     Dosage: UNK
  4. SULPIRID [Concomitant]
     Indication: MENTAL DISORDER
     Dosage: 1-1/2-0
  5. TOLPERISONE [Concomitant]
     Indication: MUSCLE SPASTICITY
  6. BACLOFEN [Concomitant]
     Indication: MUSCLE SPASTICITY

REACTIONS (17)
  - PARESIS [None]
  - SECONDARY PROGRESSIVE MULTIPLE SCLEROSIS [None]
  - NASOPHARYNGITIS [None]
  - GENERAL PHYSICAL HEALTH DETERIORATION [None]
  - UHTHOFF'S PHENOMENON [None]
  - C-REACTIVE PROTEIN INCREASED [None]
  - HYPERTONIA [None]
  - BODY TEMPERATURE INCREASED [None]
  - BACK PAIN [None]
  - MUSCULOSKELETAL STIFFNESS [None]
  - PAIN [None]
  - INFLUENZA [None]
  - GAMMA-GLUTAMYLTRANSFERASE INCREASED [None]
  - HYPERTENSION [None]
  - MUSCULAR WEAKNESS [None]
  - GAIT DISTURBANCE [None]
  - EXTENSOR PLANTAR RESPONSE [None]
